FAERS Safety Report 9538810 (Version 1)
Quarter: 2013Q2

REPORT INFORMATION
  Report Type: Spontaneous
  Country: US (occurrence: None)
  Receive Date: 20130517
  Receipt Date: 20130517
  Transmission Date: 20140414
  Serious: Yes (Death, Hospitalization)
  Sender: FDA-Public Use
  Company Number: 2012PL000108

PATIENT
  Age: 27 Year
  Sex: Female

DRUGS (2)
  1. IMURAN (AZATHIOPRINE) [Suspect]
     Indication: AUTOIMMUNE HEPATITIS
     Dates: start: 20120502, end: 20120521
  2. ORAL CONTRACEPTIVE NOS [Concomitant]

REACTIONS (2)
  - Bone marrow failure [None]
  - Pancytopenia [None]
